FAERS Safety Report 8331750-2 (Version None)
Quarter: 2012Q2

REPORT INFORMATION
  Report Type: 
  Country: None (occurrence: None)
  Receive Date: 20120502
  Receipt Date: 20120423
  Transmission Date: 20120825
  Serious: No
  Sender: FDA-Public Use
  Company Number: US-AMGEN-USASP2012025593

PATIENT
  Age: 61 Year
  Sex: Male

DRUGS (1)
  1. ENBREL [Suspect]
     Indication: ERYTHRODERMIC PSORIASIS
     Dosage: 50 MG, QWK
     Dates: start: 20120305

REACTIONS (4)
  - INJECTION SITE PAIN [None]
  - DIZZINESS [None]
  - INJECTION SITE HAEMORRHAGE [None]
  - BLOOD GLUCOSE DECREASED [None]
